FAERS Safety Report 4844135-8 (Version None)
Quarter: 2005Q4

REPORT INFORMATION
  Report Type: 
  Country: None (occurrence: None)
  Receive Date: 20051202
  Receipt Date: 20051122
  Transmission Date: 20060501
  Serious: Yes (Hospitalization)
  Sender: FDA-Public Use
  Company Number: NL-SANOFI-SYNTHELABO-A01200508145

PATIENT
  Sex: Male

DRUGS (6)
  1. PLAVIX [Suspect]
     Indication: CORONARY ANGIOPLASTY
     Route: 048
  2. PLAVIX [Suspect]
     Indication: THROMBOSIS
     Route: 048
  3. PREDNISON [Concomitant]
     Indication: DRUG USE FOR UNKNOWN INDICATION
     Dosage: UNK
     Route: 065
  4. EPOGEN [Concomitant]
     Indication: DRUG USE FOR UNKNOWN INDICATION
     Dosage: UNK
     Route: 065
  5. VITAMIN A [Concomitant]
     Indication: DRUG USE FOR UNKNOWN INDICATION
     Dosage: UNK
     Route: 065
  6. CORTISONE ACETATE TAB [Concomitant]
     Indication: DRUG USE FOR UNKNOWN INDICATION
     Dosage: UNK
     Route: 065

REACTIONS (2)
  - GLOMERULONEPHRITIS [None]
  - RENAL IMPAIRMENT [None]
